FAERS Safety Report 5075709-X (Version None)
Quarter: 2006Q3

REPORT INFORMATION
  Report Type: 
  Country: None (occurrence: None)
  Receive Date: 20060807
  Receipt Date: 20060727
  Transmission Date: 20061208
  Serious: Yes (Other)
  Sender: FDA-Public Use
  Company Number: S06-USA-02937-01

PATIENT
  Age: 82 Year
  Sex: Male

DRUGS (9)
  1. TIAZAC [Suspect]
     Indication: CORONARY ARTERY DISEASE
     Dosage: 120 MG TID PO
     Route: 048
     Dates: start: 20030101
  2. TIAZAC [Suspect]
     Indication: HYPERTENSION
     Dosage: 120 MG TID PO
     Route: 048
     Dates: start: 20030101
  3. RAMIPRIL [Suspect]
     Indication: HYPERTENSION
     Dosage: 10 MG QD
     Dates: start: 20030101
  4. HYDROCHLOROTHIAZIDE [Suspect]
     Indication: HYPERTENSION
     Dosage: 25 MG QD
     Dates: start: 20030101, end: 20060726
  5. HYDROCHLOROTHIAZIDE [Suspect]
     Indication: HYPERTENSION
     Dosage: 12.5 MG QD
     Dates: start: 20060727
  6. VALIUM [Concomitant]
  7. PERCOCET [Concomitant]
  8. ASPIRIN [Concomitant]
  9. BACLOFEN [Concomitant]

REACTIONS (4)
  - BLOOD CREATININE INCREASED [None]
  - BLOOD UREA INCREASED [None]
  - DRUG INTERACTION [None]
  - OEDEMA PERIPHERAL [None]
